FAERS Safety Report 7382551-3 (Version None)
Quarter: 2011Q1

REPORT INFORMATION
  Report Type: 
  Country: None (occurrence: None)
  Receive Date: 20110329
  Receipt Date: 20110323
  Transmission Date: 20110831
  Serious: Yes (Death, Life-Threatening, Hospitalization)
  Sender: FDA-Public Use
  Company Number: US-BAYER-2010-003367

PATIENT
  Age: 79 Year
  Sex: Male
  Weight: 130 kg

DRUGS (20)
  1. AMLODIPINE BESYLATE [Concomitant]
  2. MUPIROCIN [Concomitant]
  3. OXYCONTIN [Concomitant]
  4. OXYCODONE [Concomitant]
  5. COMPAZINE [Concomitant]
  6. SYMBICORT [Concomitant]
  7. COMBIVENT [Concomitant]
  8. GLIPIZIDE [Concomitant]
  9. DARVOCET [Concomitant]
  10. CALCIUM [Concomitant]
  11. LORAZEPAM [Concomitant]
  12. SORAFENIB (RAF KINASE INHIBITOR) [Suspect]
     Indication: HEPATIC NEOPLASM MALIGNANT
     Dosage: 400 MG, BID
     Route: 048
     Dates: start: 20100708, end: 20101019
  13. ENABLEX [Concomitant]
  14. MULTI-VITAMINS [Concomitant]
  15. ZOFRAN [Concomitant]
  16. DOXORUBICIN [Suspect]
     Indication: HEPATIC NEOPLASM MALIGNANT
     Dosage: 60 MG/M2 ON DAY 1 (CYLCE =21 DAYS (CYCLES 1-6)
     Route: 042
     Dates: start: 20100708, end: 20101013
  17. ASPIRIN [Concomitant]
  18. DOXORUBICIN [Suspect]
     Dosage: 138 UNK, UNK
     Dates: start: 20101013, end: 20101013
  19. LYRICA [Concomitant]
  20. PREVACID [Concomitant]

REACTIONS (2)
  - SEPSIS [None]
  - FEBRILE NEUTROPENIA [None]
